FAERS Safety Report 4654370-X (Version None)
Quarter: 2005Q2

REPORT INFORMATION
  Report Type: 
  Country: None (occurrence: None)
  Receive Date: 20050404
  Receipt Date: 20041222
  Transmission Date: 20051028
  Serious: No
  Sender: FDA-Public Use
  Company Number: USA041286855

PATIENT
  Sex: Female

DRUGS (3)
  1. CYMBALTA (DULOEXTINE HYDROCHLORIDE) [Suspect]
     Indication: PAIN
     Dosage: 30 MG DAY
     Dates: start: 20041221
  2. LORCET-HD [Concomitant]
  3. XANAX (ALPRAZOLAM DUM) [Concomitant]

REACTIONS (3)
  - FATIGUE [None]
  - FEELING ABNORMAL [None]
  - POLLAKIURIA [None]
